FAERS Safety Report 4867559-1 (Version None)
Quarter: 2005Q4

REPORT INFORMATION
  Report Type: 
  Country: None (occurrence: None)
  Receive Date: 20051222
  Receipt Date: 20051213
  Transmission Date: 20060501
  Serious: Yes (Hospitalization)
  Sender: FDA-Public Use
  Company Number: HQWYE033815DEC05

PATIENT
  Age: 46 Year
  Sex: Male
  Weight: 82.5 kg

DRUGS (1)
  1. MYLOTARG [Suspect]
     Indication: ACUTE MYELOID LEUKAEMIA
     Dosage: A SINGLE 18.8 MG DOSE, INTRAVENOUS
     Route: 042
     Dates: start: 20051202, end: 20051202

REACTIONS (2)
  - NEUTROPENIA [None]
  - PYREXIA [None]
